FAERS Safety Report 7311958-5 (Version None)
Quarter: 2011Q1

REPORT INFORMATION
  Report Type: 
  Country: None (occurrence: None)
  Receive Date: 20110224
  Receipt Date: 20110215
  Transmission Date: 20110831
  Serious: Yes (Other)
  Sender: FDA-Public Use
  Company Number: US-ROCHE-735624

PATIENT
  Sex: Male
  Weight: 81.6 kg

DRUGS (3)
  1. VENTOLIN DS [Concomitant]
  2. ACCUTANE [Suspect]
     Indication: ACNE
     Route: 065
     Dates: start: 19870101, end: 19890101
  3. ACCUTANE [Suspect]
     Route: 065
     Dates: start: 19900101, end: 19920101

REACTIONS (5)
  - COLITIS ULCERATIVE [None]
  - INFLAMMATORY BOWEL DISEASE [None]
  - DEPRESSION [None]
  - ATTENTION DEFICIT/HYPERACTIVITY DISORDER [None]
  - GASTROINTESTINAL INJURY [None]
